FAERS Safety Report 16894772 (Version 1)
Quarter: 2019Q4

REPORT INFORMATION
  Report Type: Spontaneous
  Country: US (occurrence: US)
  Receive Date: 20191007
  Receipt Date: 20191007
  Transmission Date: 20200122
  Serious: Yes (Hospitalization)
  Sender: FDA-Public Use
  Company Number: None

PATIENT
  Age: 64 Year
  Sex: Female

DRUGS (18)
  1. TACROLIMUS. [Concomitant]
     Active Substance: TACROLIMUS
  2. PREDNISONE. [Concomitant]
     Active Substance: PREDNISONE
  3. METOPROLOL TARTRATE. [Concomitant]
     Active Substance: METOPROLOL TARTRATE
  4. HUMALOG [Concomitant]
     Active Substance: INSULIN LISPRO
  5. CODEINE [Concomitant]
     Active Substance: CODEINE
  6. BUMETANIDE. [Concomitant]
     Active Substance: BUMETANIDE
  7. TOBRAMYCIN. [Suspect]
     Active Substance: TOBRAMYCIN
     Indication: INFECTIVE PULMONARY EXACERBATION OF CYSTIC FIBROSIS
     Route: 055
     Dates: start: 20180226
  8. VALGANCICLOV [Concomitant]
  9. RANITIDINE. [Concomitant]
     Active Substance: RANITIDINE
  10. CLONAZEPAM. [Concomitant]
     Active Substance: CLONAZEPAM
  11. ALLOPURINOL. [Concomitant]
     Active Substance: ALLOPURINOL
  12. ELIQUIS [Concomitant]
     Active Substance: APIXABAN
  13. PANTOPRAZOLE [Concomitant]
     Active Substance: PANTOPRAZOLE
  14. URSODIOL. [Concomitant]
     Active Substance: URSODIOL
  15. CLONAEPAM [Concomitant]
  16. PTHYETH GLYC [Concomitant]
  17. COLCHICINE. [Concomitant]
     Active Substance: COLCHICINE
  18. LANTUS [Concomitant]
     Active Substance: INSULIN GLARGINE

REACTIONS (3)
  - Gout [None]
  - Peripheral swelling [None]
  - Therapy cessation [None]
